FAERS Safety Report 12563004 (Version 1)
Quarter: 2016Q3

REPORT INFORMATION
  Report Type: Spontaneous
  Country: US (occurrence: US)
  Receive Date: 20160715
  Receipt Date: 20160715
  Transmission Date: 20161109
  Serious: Yes (Death, Hospitalization)
  Sender: FDA-Public Use
  Company Number: US-UNITED THERAPEUTICS-UNT-2016-010720

PATIENT
  Sex: Female

DRUGS (2)
  1. REMODULIN [Suspect]
     Active Substance: TREPROSTINIL
     Dosage: 0.007 ?G/KG, CONTINUING
     Route: 041
  2. REMODULIN [Suspect]
     Active Substance: TREPROSTINIL
     Indication: PULMONARY ARTERIAL HYPERTENSION
     Dosage: 0.006 ?G/KG, CONTINUING
     Route: 041
     Dates: start: 20160623

REACTIONS (5)
  - Device breakage [Unknown]
  - Drug dose omission [Unknown]
  - Pulmonary embolism [Fatal]
  - Headache [Unknown]
  - Device leakage [Unknown]

NARRATIVE: CASE EVENT DATE: 20160701
